FAERS Safety Report 5319815-0 (Version None)
Quarter: 2007Q1

REPORT INFORMATION
  Report Type: 
  Country: None (occurrence: None)
  Receive Date: 20070205
  Receipt Date: 20060420
  Transmission Date: 20070707
  Serious: Yes (Other)
  Sender: FDA-Public Use
  Company Number: US-JNJFOC-20060404833

PATIENT
  Sex: Female

DRUGS (1)
  1. FLOXIN [Suspect]
     Indication: PELVIC INFECTION
     Dosage: ORAL
     Route: 048
     Dates: start: 19970101, end: 19970101

REACTIONS (5)
  - GAIT DISTURBANCE [None]
  - HYPERAESTHESIA [None]
  - OEDEMA PERIPHERAL [None]
  - PSYCHOTIC DISORDER [None]
  - VISUAL DISTURBANCE [None]
